FAERS Safety Report 6858922-8 (Version None)
Quarter: 2010Q3

REPORT INFORMATION
  Report Type: 
  Country: None (occurrence: None)
  Receive Date: 20100719
  Receipt Date: 20080217
  Transmission Date: 20110219
  Serious: No
  Sender: FDA-Public Use
  Company Number: US-PFIZER INC-2008016405

PATIENT
  Sex: Female

DRUGS (7)
  1. CHANTIX [Suspect]
     Indication: SMOKING CESSATION THERAPY
     Route: 048
     Dates: start: 20080214
  2. PREMARIN [Concomitant]
  3. LISINOPRIL [Concomitant]
  4. METHADONE HCL [Concomitant]
  5. KLONOPIN [Concomitant]
  6. TRAZODONE HYDROCHLORIDE [Concomitant]
  7. LEXAPRO [Concomitant]

REACTIONS (2)
  - ANXIETY [None]
  - HEADACHE [None]
